FAERS Safety Report 7644481-9 (Version None)
Quarter: 2011Q3

REPORT INFORMATION
  Report Type: 
  Country: None (occurrence: None)
  Receive Date: 20110729
  Receipt Date: 20110720
  Transmission Date: 20111222
  Serious: Yes (Other)
  Sender: FDA-Public Use
  Company Number: US-ROCHE-791274

PATIENT

DRUGS (1)
  1. ACCUTANE [Suspect]
     Indication: ACNE
     Dosage: FORM:PILLS
     Route: 048
     Dates: start: 20020101

REACTIONS (3)
  - COLITIS [None]
  - ANXIETY [None]
  - COLITIS ULCERATIVE [None]
